FAERS Safety Report 5939748-6 (Version None)
Quarter: 2008Q4

REPORT INFORMATION
  Report Type: 
  Country: None (occurrence: None)
  Receive Date: 20081030
  Receipt Date: 20081030
  Transmission Date: 20090506
  Serious: Yes (Other)
  Sender: FDA-Public Use
  Company Number: None

PATIENT
  Sex: Male
  Weight: 88.4514 kg

DRUGS (2)
  1. NIASPAN [Suspect]
     Indication: BLOOD CHOLESTEROL INCREASED
     Dosage: 1 TABLET BEDTIME   1 TIME ONLY
  2. ZOCOR [Suspect]
     Indication: BLOOD CHOLESTEROL INCREASED
     Dosage: 1 TABLET AT BEDTIME 5 TO 6 MONTHS

REACTIONS (3)
  - ARTHRALGIA [None]
  - DRUG HYPERSENSITIVITY [None]
  - PRURITUS GENERALISED [None]
